FAERS Safety Report 16416671 (Version 1)
Quarter: 2019Q2

REPORT INFORMATION
  Report Type: Spontaneous
  Country: US (occurrence: US)
  Receive Date: 20190611
  Receipt Date: 20190611
  Transmission Date: 20190711
  Serious: Yes (Other)
  Sender: FDA-Public Use
  Company Number: US-ASTRAZENECA-2019SE84632

PATIENT
  Age: 642 Month
  Sex: Female
  Weight: 65.8 kg

DRUGS (2)
  1. CRESTOR [Suspect]
     Active Substance: ROSUVASTATIN CALCIUM
     Indication: BLOOD CHOLESTEROL
     Dosage: GENERIC
     Route: 065
  2. CRESTOR [Suspect]
     Active Substance: ROSUVASTATIN CALCIUM
     Indication: BLOOD CHOLESTEROL
     Route: 048
     Dates: start: 2003

REACTIONS (4)
  - Alopecia [Recovered/Resolved]
  - Blood cholesterol increased [Not Recovered/Not Resolved]
  - Central nervous system lymphoma [Unknown]
  - LDL/HDL ratio increased [Not Recovered/Not Resolved]

NARRATIVE: CASE EVENT DATE: 200706
